FAERS Safety Report 23781078 (Version 1)
Quarter: 2024Q2

REPORT INFORMATION
  Report Type: Spontaneous
  Country: IT (occurrence: IT)
  Receive Date: 20240425
  Receipt Date: 20240425
  Transmission Date: 20240715
  Serious: Yes (Death, Life-Threatening, Hospitalization, Other)
  Sender: FDA-Public Use
  Company Number: IT-MINISAL02-980301

PATIENT

DRUGS (10)
  1. RIVAROXABAN [Suspect]
     Active Substance: RIVAROXABAN
     Indication: Product used for unknown indication
     Dosage: 20 MILLIGRAM COATED TABLET, UNK
     Route: 048
  2. ALENDRONATE SODIUM [Concomitant]
     Active Substance: ALENDRONATE SODIUM
     Indication: Product used for unknown indication
     Dosage: UNK
     Route: 048
  3. TELMISARTAN [Concomitant]
     Active Substance: TELMISARTAN
     Indication: Product used for unknown indication
     Dosage: UNK
     Route: 048
  4. FLECAINIDE ACETATE [Concomitant]
     Active Substance: FLECAINIDE ACETATE
     Indication: Product used for unknown indication
     Dosage: UNK
     Route: 048
  5. XARENEL [Concomitant]
     Indication: Product used for unknown indication
     Dosage: UNK
     Route: 048
  6. ESCITALOPRAM OXALATE [Concomitant]
     Active Substance: ESCITALOPRAM OXALATE
     Indication: Product used for unknown indication
     Dosage: UNK
     Route: 048
  7. PANTOPRAZOLE SODIUM [Concomitant]
     Active Substance: PANTOPRAZOLE SODIUM
     Indication: Product used for unknown indication
     Dosage: UNK
     Route: 048
  8. CHOLINE ALFOSCERATE [Concomitant]
     Active Substance: CHOLINE ALFOSCERATE
     Indication: Product used for unknown indication
     Dosage: UNK
     Route: 048
  9. OROTRE [Concomitant]
     Indication: Product used for unknown indication
     Dosage: UNK
     Route: 048
  10. LEVOSULPIRIDE [Concomitant]
     Active Substance: LEVOSULPIRIDE
     Indication: Product used for unknown indication
     Dosage: UNK
     Route: 048

REACTIONS (2)
  - Coma [Fatal]
  - Cerebral haemorrhage [Fatal]

NARRATIVE: CASE EVENT DATE: 20240215
